FAERS Safety Report 18777026 (Version 2)
Quarter: 2021Q1

REPORT INFORMATION
  Report Type: Spontaneous
  Country: FR (occurrence: FR)
  Receive Date: 20210122
  Receipt Date: 20210223
  Transmission Date: 20210419
  Serious: Yes (Hospitalization, Other)
  Sender: FDA-Public Use
  Company Number: FR-ASTRAZENECA-2021A009478

PATIENT
  Age: 906 Month
  Sex: Male
  Weight: 91.4 kg

DRUGS (1)
  1. FORXIGA [Suspect]
     Active Substance: DAPAGLIFLOZIN
     Dosage: 10.0MG UNKNOWN
     Route: 048

REACTIONS (5)
  - Type 1 diabetes mellitus [Unknown]
  - Diabetic ketosis [Recovered/Resolved]
  - COVID-19 [Unknown]
  - Toxicity to various agents [Recovered/Resolved]
  - Anti-GAD antibody positive [Unknown]

NARRATIVE: CASE EVENT DATE: 202010
